FAERS Safety Report 23098723 (Version 1)
Quarter: 2023Q4

REPORT INFORMATION
  Report Type: Spontaneous
  Country: US (occurrence: US)
  Receive Date: 20231024
  Receipt Date: 20231024
  Transmission Date: 20240110
  Serious: No
  Sender: FDA-Public Use
  Company Number: US-009507513-2310USA008512

PATIENT
  Age: 3 Month
  Sex: Male

DRUGS (2)
  1. TRUSOPT [Suspect]
     Active Substance: DORZOLAMIDE HYDROCHLORIDE
     Indication: Intraocular pressure increased
     Dosage: UNK, BID
     Route: 061
  2. BETAXOLOL [Suspect]
     Active Substance: BETAXOLOL
     Indication: Intraocular pressure increased
     Dosage: UNK, BID

REACTIONS (1)
  - Drug ineffective [Unknown]
